FAERS Safety Report 9148079 (Version 1)
Quarter: 2013Q1

REPORT INFORMATION
  Report Type: Spontaneous
  Country: GB (occurrence: GB)
  Receive Date: 20130308
  Receipt Date: 20130308
  Transmission Date: 20140127
  Serious: Yes (Hospitalization)
  Sender: FDA-Public Use
  Company Number: GB-009507513-1301GBR008794

PATIENT
  Age: 59 Year
  Sex: Male

DRUGS (1)
  1. SINEMET [Suspect]
     Indication: PARKINSON^S DISEASE
     Dosage: 125 MG, FIVE TIMES DAILY
     Route: 048
     Dates: start: 20121213, end: 20130104

REACTIONS (5)
  - Condition aggravated [Recovered/Resolved]
  - Drug dose omission [Unknown]
  - Drug ineffective [Recovered/Resolved]
  - Tablet physical issue [Unknown]
  - Wrong technique in drug usage process [Unknown]
